FAERS Safety Report 9186499 (Version 1)
Quarter: 2013Q1

REPORT INFORMATION
  Report Type: Spontaneous
  Country: US (occurrence: US)
  Receive Date: 20130325
  Receipt Date: 20130325
  Transmission Date: 20140127
  Serious: No
  Sender: FDA-Public Use
  Company Number: US-PFIZER INC-2013093482

PATIENT
  Age: 56 Year
  Sex: Male
  Weight: 90.7 kg

DRUGS (4)
  1. CHANTIX [Suspect]
     Indication: SMOKING CESSATION THERAPY
     Dosage: 0.5 MG, 1X/DAY
     Route: 048
     Dates: start: 201303, end: 201303
  2. CHANTIX [Suspect]
     Dosage: UNK
     Route: 048
     Dates: start: 201303
  3. XANAX [Concomitant]
     Dosage: UNK
  4. ADRENALINE [Concomitant]
     Indication: ATTENTION DEFICIT/HYPERACTIVITY DISORDER
     Dosage: UNK

REACTIONS (1)
  - Abnormal dreams [Not Recovered/Not Resolved]
